FAERS Safety Report 6840191-6 (Version None)
Quarter: 2010Q2

REPORT INFORMATION
  Report Type: 
  Country: None (occurrence: None)
  Receive Date: 20100629
  Receipt Date: 20100427
  Transmission Date: 20101027
  Serious: No
  Sender: FDA-Public Use
  Company Number: US-WYE-H14861910

PATIENT
  Age: 43 Year
  Sex: Female

DRUGS (1)
  1. PRISTIQ [Suspect]

REACTIONS (3)
  - HALLUCINATION [None]
  - NIGHT SWEATS [None]
  - PARANOIA [None]
